FAERS Safety Report 9873000 (Version 2)
Quarter: 2014Q1

REPORT INFORMATION
  Report Type: Spontaneous
  Country: US (occurrence: US)
  Receive Date: 20140206
  Receipt Date: 20140206
  Transmission Date: 20141002
  Serious: No
  Sender: FDA-Public Use
  Company Number: US-ACORDA-ACO_30419_2012

PATIENT
  Age: 37 Year
  Sex: Male

DRUGS (1)
  1. AMPYRA [Suspect]
     Indication: MULTIPLE SCLEROSIS
     Dosage: 10 MG, Q 12 HRS
     Route: 048
     Dates: end: 20131031

REACTIONS (3)
  - Fall [Unknown]
  - Balance disorder [Unknown]
  - Asthenia [Unknown]
